FAERS Safety Report 7922720-4 (Version None)
Quarter: 2011Q4

REPORT INFORMATION
  Report Type: 
  Country: None (occurrence: None)
  Receive Date: 20111117
  Receipt Date: 20110511
  Transmission Date: 20120403
  Serious: No
  Sender: FDA-Public Use
  Company Number: US-ALLERGAN-1106478US

PATIENT
  Age: 63 Year
  Sex: Female

DRUGS (2)
  1. LUMIGAN [Concomitant]
     Indication: GLAUCOMA
     Dosage: UNK
     Dates: start: 20010101
  2. COMBIGAN [Suspect]
     Indication: GLAUCOMA
     Dosage: 1 MG, QD
     Route: 047
     Dates: start: 20100101, end: 20100701

REACTIONS (5)
  - SCLERAL DISORDER [None]
  - OCULAR HYPERAEMIA [None]
  - EYE IRRITATION [None]
  - EYE PRURITUS [None]
  - HYPERSENSITIVITY [None]
